FAERS Safety Report 10019229 (Version 1)
Quarter: 2014Q1

REPORT INFORMATION
  Report Type: Spontaneous
  Country: CN (occurrence: CN)
  Receive Date: 20140318
  Receipt Date: 20140318
  Transmission Date: 20141002
  Serious: Yes (Hospitalization)
  Sender: FDA-Public Use
  Company Number: CN-NAPPMUNDI-GBR-2014-0017397

PATIENT
  Age: 86 Year
  Sex: Male

DRUGS (2)
  1. NORSPAN 5 UG/H [Suspect]
     Indication: ARTHRALGIA
     Dosage: 5 MCG, Q1H
     Route: 062
     Dates: start: 20140303, end: 20140304
  2. ANTIDIABETICS [Concomitant]
     Indication: DIABETES MELLITUS
     Dosage: UNK
     Route: 065

REACTIONS (4)
  - Dizziness [Recovered/Resolved]
  - Nausea [Recovered/Resolved]
  - Vomiting [Recovered/Resolved]
  - Blood pressure increased [Recovered/Resolved]
